FAERS Safety Report 16881146 (Version 2)
Quarter: 2019Q4

REPORT INFORMATION
  Report Type: Spontaneous
  Country: CN (occurrence: CN)
  Receive Date: 20191003
  Receipt Date: 20191014
  Transmission Date: 20200122
  Serious: Yes (Other)
  Sender: FDA-Public Use
  Company Number: CN-009507513-1909CHN014167

PATIENT
  Age: 85 Year
  Sex: Male

DRUGS (2)
  1. SULPERAZONE [Suspect]
     Active Substance: CEFOPERAZONE SODIUM\SULBACTAM SODIUM
     Indication: PNEUMONIA
     Dosage: 2 GRAM, IVGTT, BID
     Route: 041
     Dates: start: 20190731, end: 20190806
  2. TIENAM [Suspect]
     Active Substance: CILASTATIN SODIUM\IMIPENEM
     Indication: PNEUMONIA
     Dosage: 1 GRAM, IVGTT, BID
     Route: 041
     Dates: start: 20190806, end: 20190909

REACTIONS (1)
  - Pseudomembranous colitis [Unknown]

NARRATIVE: CASE EVENT DATE: 20190811
